FAERS Safety Report 9046975 (Version 1)
Quarter: 2013Q1

REPORT INFORMATION
  Report Type: Spontaneous
  Country: DE (occurrence: DE)
  Receive Date: 20130204
  Receipt Date: 20130204
  Transmission Date: 20140127
  Serious: Yes (Life-Threatening, Hospitalization, Other)
  Sender: FDA-Public Use
  Company Number: DE-ELI_LILLY_AND_COMPANY-DE201301009754

PATIENT
  Age: 59 Year
  Sex: Female

DRUGS (11)
  1. ZYPREXA VELOTAB [Suspect]
     Indication: SCHIZOAFFECTIVE DISORDER
     Dosage: 15 MG, UNKNOWN
     Dates: start: 20130107, end: 20130123
  2. TAVOR [Concomitant]
     Dosage: 2 MG, UNK
  3. NEUROCIL [Concomitant]
     Dosage: 150 MG, UNK
  4. LYOGEN [Concomitant]
     Dosage: 1 MG, UNK
  5. ERGENYL CHRONO [Concomitant]
     Dosage: 800 MG, UNK
  6. PANTOPRAZOLE [Concomitant]
     Dosage: 20 MG, UNK
  7. BAYOTENSIN [Concomitant]
     Dosage: 20 MG, UNK
  8. AGGRENOX [Concomitant]
     Dosage: 1 DF, UNK
  9. ENAHEXAL                           /00574902/ [Concomitant]
     Dosage: 20 MG, UNK
  10. EUTHYROX [Concomitant]
     Dosage: 100 UG, UNK
  11. ACTRAPHANE [Concomitant]
     Dosage: 30 U, BID

REACTIONS (2)
  - Hypothermia [Recovered/Resolved]
  - Somnolence [Recovered/Resolved]
